FAERS Safety Report 9861853 (Version 1)
Quarter: 2014Q1

REPORT INFORMATION
  Report Type: Spontaneous
  Country: US (occurrence: US)
  Receive Date: 20140203
  Receipt Date: 20140203
  Transmission Date: 20141002
  Serious: No
  Sender: FDA-Public Use
  Company Number: US-PFIZER INC-2014027810

PATIENT
  Age: 73 Year
  Sex: Female

DRUGS (2)
  1. PREMARIN [Suspect]
     Dosage: UNK
  2. PREMARIN [Suspect]
     Dosage: 0.5 DF (SPLITTING THE TABLET INTO HALF), UNK

REACTIONS (5)
  - Insomnia [Unknown]
  - Activities of daily living impaired [Unknown]
  - Depression [Unknown]
  - Fatigue [Unknown]
  - Off label use [Unknown]
